FAERS Safety Report 22781014 (Version 3)
Quarter: 2024Q3

REPORT INFORMATION
  Report Type: Report from Study
  Country: CA (occurrence: None)
  Receive Date: 20230803
  Receipt Date: 20240823
  Transmission Date: 20241017
  Serious: Yes (Other)
  Sender: ORION
  Company Number: CA-PFIZER INC-202300263028

PATIENT
  Age: 70 Year
  Sex: Female

DRUGS (29)
  1. METHOTREXATE [Suspect]
     Active Substance: METHOTREXATE
     Indication: Product used for unknown indication
  2. METHOTREXATE [Suspect]
     Active Substance: METHOTREXATE
  3. ZOLEDRONIC ACID [Suspect]
     Active Substance: ZOLEDRONIC ACID
     Indication: Product used for unknown indication
  4. DESOXIMETASONE [Suspect]
     Active Substance: DESOXIMETASONE
     Indication: Product used for unknown indication
  5. DESOXIMETASONE [Suspect]
     Active Substance: DESOXIMETASONE
  6. DESOXIMETASONE [Suspect]
     Active Substance: DESOXIMETASONE
  7. DESOXIMETASONE [Suspect]
     Active Substance: DESOXIMETASONE
  8. DESOXIMETASONE [Suspect]
     Active Substance: DESOXIMETASONE
  9. DESOXIMETASONE [Suspect]
     Active Substance: DESOXIMETASONE
  10. ACTEMRA [Concomitant]
     Active Substance: TOCILIZUMAB
  11. BOTOX [Concomitant]
     Active Substance: ONABOTULINUMTOXINA
  12. BOTOX [Concomitant]
     Active Substance: ONABOTULINUMTOXINA
  13. CYCLOSPORINE [Concomitant]
     Active Substance: CYCLOSPORINE
  14. CYCLOSPORINE [Concomitant]
     Active Substance: CYCLOSPORINE
  15. ENBREL [Concomitant]
     Active Substance: BENZYL ALCOHOL\ETANERCEPT
  16. ORENCIA [Concomitant]
     Active Substance: ABATACEPT
  17. PILOCARPINE [Concomitant]
     Active Substance: PILOCARPINE
  18. PREDNISONE [Concomitant]
     Active Substance: PREDNISONE
  19. SALAGEN [Concomitant]
     Active Substance: PILOCARPINE HYDROCHLORIDE
  20. SALAGEN [Concomitant]
     Active Substance: PILOCARPINE HYDROCHLORIDE
  21. SULFASALAZINE [Concomitant]
     Active Substance: SULFASALAZINE
  22. SULFATRIM [Concomitant]
     Active Substance: SULFAMETHOXAZOLE\TRIMETHOPRIM
  23. SYNTHROID [Concomitant]
     Active Substance: LEVOTHYROXINE SODIUM
  24. TRAZODONE [Concomitant]
     Active Substance: TRAZODONE HYDROCHLORIDE
  25. TREHALOSE [Concomitant]
     Active Substance: TREHALOSE
  26. TYLENOL [Concomitant]
     Active Substance: ACETAMINOPHEN
  27. VITAMIN D NOS [Concomitant]
     Active Substance: CHOLECALCIFEROL\ERGOCALCIFEROL
  28. XELJANZ [Concomitant]
     Active Substance: TOFACITINIB CITRATE
  29. ERGOCALCIFEROL [Concomitant]
     Active Substance: ERGOCALCIFEROL

REACTIONS (14)
  - Arthralgia [Unknown]
  - Bicytopenia [Unknown]
  - Bronchial wall thickening [Unknown]
  - Bronchiectasis [Unknown]
  - Calcification of muscle [Unknown]
  - Condition aggravated [Unknown]
  - Dysphagia [Unknown]
  - Fatigue [Unknown]
  - Felty^s syndrome [Unknown]
  - Lung disorder [Unknown]
  - Malaise [Unknown]
  - Myalgia [Unknown]
  - Osteoporosis [Unknown]
  - Pneumonia [Unknown]
